FAERS Safety Report 20340678 (Version 7)
Quarter: 2023Q1

REPORT INFORMATION
  Report Type: Report from Study
  Country: US (occurrence: US)
  Receive Date: 20220117
  Receipt Date: 20230303
  Transmission Date: 20230418
  Serious: Yes (Hospitalization)
  Sender: FDA-Public Use
  Company Number: US-NOVARTISTESTPH-NVSC2022US007797

PATIENT
  Age: 42 Year
  Sex: Female

DRUGS (3)
  1. ILARIS [Suspect]
     Active Substance: CANAKINUMAB
     Indication: Still^s disease
     Dosage: 195.5 MG, QMO
     Route: 058
     Dates: start: 20220110
  2. ILARIS [Suspect]
     Active Substance: CANAKINUMAB
     Dosage: 212 MG, QMO
     Route: 058
  3. ILARIS [Suspect]
     Active Substance: CANAKINUMAB
     Dosage: 212 MG, EVERY 4 WEEKS (OTHER)
     Route: 058
     Dates: start: 20230129

REACTIONS (3)
  - Intestinal obstruction [Unknown]
  - Incorrect dose administered [Unknown]
  - Inappropriate schedule of product administration [Unknown]

NARRATIVE: CASE EVENT DATE: 20220711
